FAERS Safety Report 14688801 (Version 1)
Quarter: 2018Q1

REPORT INFORMATION
  Report Type: Spontaneous
  Country: JP (occurrence: JP)
  Receive Date: 20180328
  Receipt Date: 20180328
  Transmission Date: 20180509
  Serious: Yes (Other)
  Sender: FDA-Public Use
  Company Number: PHJP2018JP007164

PATIENT
  Age: 25 Year
  Sex: Female

DRUGS (4)
  1. FILGRASTIM BS INJ. SYRINGE [Suspect]
     Active Substance: FILGRASTIM
     Indication: APLASTIC ANAEMIA
     Dosage: 75 UG, QW
     Route: 065
  2. CICLOSPORIN [Suspect]
     Active Substance: CYCLOSPORINE
     Dosage: 6 MG/KG, UNK
     Route: 048
  3. CICLOSPORIN [Suspect]
     Active Substance: CYCLOSPORINE
     Indication: APLASTIC ANAEMIA
     Dosage: 6 MG/KG, UNK
     Route: 048
  4. THYMOGLOBULINE [Concomitant]
     Active Substance: LAPINE T-LYMPHOCYTE IMMUNE GLOBULIN
     Indication: APLASTIC ANAEMIA
     Dosage: 2.5 MG/KG, UNK
     Route: 065

REACTIONS (2)
  - White blood cell count decreased [Unknown]
  - Platelet count decreased [Recovering/Resolving]
